FAERS Safety Report 8640932 (Version 3)
Quarter: 2014Q1

REPORT INFORMATION
  Report Type: Spontaneous
  Country: US (occurrence: US)
  Receive Date: 20120628
  Receipt Date: 20140114
  Transmission Date: 20141002
  Serious: Yes (Disabling)
  Sender: FDA-Public Use
  Company Number: US-ASTRAZENECA-2012SE35319

PATIENT
  Age: 47 Year
  Sex: Female
  Weight: 79.4 kg

DRUGS (42)
  1. NEXIUM [Suspect]
     Indication: ULCER
     Dosage: TWICE A DAY
     Route: 048
     Dates: start: 2005
  2. NEXIUM [Suspect]
     Indication: GASTRIC DISORDER
     Dosage: TWICE A DAY
     Route: 048
     Dates: start: 2005
  3. NEXIUM [Suspect]
     Indication: OESOPHAGEAL DISORDER
     Dosage: TWICE A DAY
     Route: 048
     Dates: start: 2005
  4. NEXIUM [Suspect]
     Indication: ULCER
     Route: 048
     Dates: start: 20070210
  5. NEXIUM [Suspect]
     Indication: GASTRIC DISORDER
     Route: 048
     Dates: start: 20070210
  6. NEXIUM [Suspect]
     Indication: OESOPHAGEAL DISORDER
     Route: 048
     Dates: start: 20070210
  7. NEXIUM [Suspect]
     Indication: ULCER
     Route: 048
     Dates: start: 20070313
  8. NEXIUM [Suspect]
     Indication: GASTRIC DISORDER
     Route: 048
     Dates: start: 20070313
  9. NEXIUM [Suspect]
     Indication: OESOPHAGEAL DISORDER
     Route: 048
     Dates: start: 20070313
  10. ENALAPRIL [Concomitant]
     Dates: start: 20070416
  11. DIAZEPAM [Concomitant]
     Dates: start: 20070904
  12. IBUPROFEN [Concomitant]
     Dates: start: 20070905
  13. JANUVIA [Concomitant]
     Dates: start: 20070907
  14. LYRICA [Concomitant]
     Dates: start: 20070907
  15. TRAMADOL HCL [Concomitant]
     Dates: start: 20070912
  16. METHYLPREDNISOLONE [Concomitant]
  17. CYCLOBENZAPRINE [Concomitant]
     Dates: start: 20071101
  18. NITROGLYCERIN [Concomitant]
  19. FLEXERIL [Concomitant]
  20. METOPROLOL [Concomitant]
  21. TRAMADOL [Concomitant]
  22. AMITRIPTYLINE [Concomitant]
  23. GLYBURIDE [Concomitant]
  24. DARVOCET [Concomitant]
  25. REPLENS [Concomitant]
  26. TIZANIDINE [Concomitant]
  27. PRAVASTATIN [Concomitant]
  28. ELAVIL [Concomitant]
  29. ASPIRIN [Concomitant]
  30. CARAFATE [Concomitant]
  31. VISTARIL [Concomitant]
  32. IRON [Concomitant]
  33. NOVOLIN [Concomitant]
  34. LOMOTIL [Concomitant]
  35. PLAQUENIL [Concomitant]
  36. ZANAFLEX [Concomitant]
  37. FERROUS SULFATE [Concomitant]
  38. BYSTOLIC [Concomitant]
  39. AFRIN [Concomitant]
  40. AMBIEN [Concomitant]
  41. PREDNISONE [Concomitant]
  42. VITAMIN D [Concomitant]

REACTIONS (8)
  - Ill-defined disorder [Unknown]
  - Osteoporosis [Unknown]
  - Upper limb fracture [Unknown]
  - Chest pain [Unknown]
  - Type 2 diabetes mellitus [Unknown]
  - Sarcoidosis [Unknown]
  - Liver disorder [Unknown]
  - Vitamin D deficiency [Unknown]
